FAERS Safety Report 23463807 (Version 1)
Quarter: 2024Q1

REPORT INFORMATION
  Report Type: Spontaneous
  Country: FR (occurrence: FR)
  Receive Date: 20240201
  Receipt Date: 20240201
  Transmission Date: 20240410
  Serious: Yes (Other)
  Sender: FDA-Public Use
  Company Number: FR-AFSSAPS-SE2024000035

PATIENT
  Age: 34 Year
  Sex: Male
  Weight: 84 kg

DRUGS (1)
  1. ACETAMINOPHEN [Suspect]
     Active Substance: ACETAMINOPHEN
     Indication: Analgesic intervention supportive therapy
     Dosage: 2 GRAM, ONCE A DAY
     Route: 065
     Dates: start: 20231030, end: 20231230

REACTIONS (1)
  - Mixed liver injury [Recovered/Resolved]

NARRATIVE: CASE EVENT DATE: 20231116
